FAERS Safety Report 24459889 (Version 1)
Quarter: 2024Q4

REPORT INFORMATION
  Report Type: Report from Study
  Country: CA (occurrence: CA)
  Receive Date: 20241018
  Receipt Date: 20241018
  Transmission Date: 20250115
  Serious: No
  Sender: ROCHE
  Company Number: CA-ROCHE-3556550

PATIENT
  Sex: Female

DRUGS (24)
  1. RITUXAN [Suspect]
     Active Substance: RITUXIMAB
     Indication: Granulomatosis with polyangiitis
     Route: 042
     Dates: start: 20190408, end: 20190430
  2. RITUXAN [Suspect]
     Active Substance: RITUXIMAB
     Route: 042
     Dates: start: 20190912, end: 20210310
  3. RITUXAN [Suspect]
     Active Substance: RITUXIMAB
     Route: 042
     Dates: start: 20230223
  4. ALENDRONATE [Concomitant]
     Active Substance: ALENDRONATE SODIUM
     Dosage: DRUG DOSE FIRST ADMINISTERED IS 70 MG MILLIGRAM(S)
  5. ATORVASTATIN [Concomitant]
     Active Substance: ATORVASTATIN
  6. BENADRYL [Concomitant]
     Active Substance: DIPHENHYDRAMINE HYDROCHLORIDE
     Dates: start: 20190408
  7. CALCIUM [Concomitant]
     Active Substance: CALCIUM
  8. COLLAGEN [Concomitant]
     Active Substance: COLLAGEN
  9. FERROUS FUMARATE [Concomitant]
     Active Substance: FERROUS FUMARATE
     Dosage: DRUG DOSE FIRST ADMINISTERED IS 300 MG MILLIGRAM(S)
  10. GOLI APPLE CIDER VINEGAR [Concomitant]
  11. PANTOPRAZOLE [Concomitant]
     Active Substance: PANTOPRAZOLE
     Dosage: DRUG DOSE FIRST ADMINISTERED IS 40 MG MILLIGRAM(S)
  12. PERINDOPRIL [Concomitant]
     Active Substance: PERINDOPRIL
  13. PREDNISONE [Concomitant]
     Active Substance: PREDNISONE
     Dosage: DRUG DOSE FIRST ADMINISTERED IS 10 MG MILLIGRAM(S)
  14. ALBUTEROL [Concomitant]
     Active Substance: ALBUTEROL
  15. SOLU-MEDROL [Concomitant]
     Active Substance: METHYLPREDNISOLONE SODIUM SUCCINATE
     Route: 042
     Dates: start: 20190408
  16. SPIRIVA [Concomitant]
     Active Substance: TIOTROPIUM BROMIDE MONOHYDRATE
  17. SULFAMETHOXAZOLE\TRIMETHOPRIM [Concomitant]
     Active Substance: SULFAMETHOXAZOLE\TRIMETHOPRIM
  18. SULFATRIM [Concomitant]
     Active Substance: SULFAMETHOXAZOLE\TRIMETHOPRIM
  19. COSMETICS [Concomitant]
     Active Substance: COSMETICS
  20. TYLENOL [Concomitant]
     Active Substance: ACETAMINOPHEN
  21. BIOTIN\CALCIUM PANTOTHENATE\CHOLINE BITARTRATE\CYANOCOBALAMIN\FOLIC AC [Concomitant]
     Active Substance: BIOTIN\CALCIUM PANTOTHENATE\CHOLINE BITARTRATE\CYANOCOBALAMIN\FOLIC ACID\INOSITOL\NIACINAMIDE\PYRIDO
  22. VITAMIN C [Concomitant]
     Active Substance: ASCORBIC ACID
  23. ASCORBIC ACID\ZINC [Concomitant]
     Active Substance: ASCORBIC ACID\ZINC
  24. ERGOCALCIFEROL [Concomitant]
     Active Substance: ERGOCALCIFEROL

REACTIONS (1)
  - Somnolence [Unknown]
